FAERS Safety Report 8410936-2 (Version None)
Quarter: 2012Q2

REPORT INFORMATION
  Report Type: 
  Country: None (occurrence: None)
  Receive Date: 20120605
  Receipt Date: 20120601
  Transmission Date: 20120825
  Serious: Yes (Other)
  Sender: FDA-Public Use
  Company Number: US-PFIZER INC-2012132662

PATIENT
  Sex: Female

DRUGS (2)
  1. EFFEXOR XR [Suspect]
     Indication: DEPRESSION
     Dosage: 150 MG, UNK
     Route: 048
  2. EFFEXOR XR [Suspect]
     Dosage: UNK
     Route: 048

REACTIONS (3)
  - EMOTIONAL DISORDER [None]
  - SUICIDAL IDEATION [None]
  - AGGRESSION [None]
